FAERS Safety Report 11619984 (Version 1)
Quarter: 2015Q4

REPORT INFORMATION
  Report Type: Spontaneous
  Country: US (occurrence: US)
  Receive Date: 20151012
  Receipt Date: 20151012
  Transmission Date: 20160304
  Serious: Yes (Other)
  Sender: FDA-Public Use
  Company Number: US-TEVA-599836USA

PATIENT
  Age: 42 Year
  Sex: Female

DRUGS (2)
  1. LOPERAMIDE [Interacting]
     Active Substance: LOPERAMIDE
     Indication: PAIN
     Dosage: 120-140MG (60-70 TABLETS) DAILY FOR 1 WEEK
     Route: 065
  2. CIMETIDINE [Suspect]
     Active Substance: CIMETIDINE
     Dosage: UP TO 6 TABLETS/DAY
     Route: 065

REACTIONS (11)
  - Anxiety [Recovered/Resolved]
  - Drug interaction [Recovered/Resolved]
  - Vomiting [Recovered/Resolved]
  - Food interaction [Recovered/Resolved]
  - Mydriasis [Recovered/Resolved]
  - Restlessness [Recovered/Resolved]
  - Drug abuse [Recovered/Resolved]
  - Diarrhoea [Recovered/Resolved]
  - Overdose [Recovered/Resolved]
  - Piloerection [Recovered/Resolved]
  - Drug withdrawal syndrome [Recovered/Resolved]
